FAERS Safety Report 19924686 (Version 4)
Quarter: 2021Q4

REPORT INFORMATION
  Report Type: Report from Study
  Country: IT (occurrence: IT)
  Receive Date: 20211006
  Receipt Date: 20211203
  Transmission Date: 20220303
  Serious: Yes (Hospitalization)
  Sender: FDA-Public Use
  Company Number: IT-TAKEDA-2021TUS060039

PATIENT
  Age: 70 Year
  Sex: Female

DRUGS (41)
  1. TEDUGLUTIDE [Suspect]
     Active Substance: TEDUGLUTIDE
     Indication: Short-bowel syndrome
     Dosage: 2.55 MILLIGRAM, QD
     Route: 065
     Dates: start: 20200114, end: 20200309
  2. TEDUGLUTIDE [Suspect]
     Active Substance: TEDUGLUTIDE
     Indication: Short-bowel syndrome
     Dosage: 2.55 MILLIGRAM, QD
     Route: 065
     Dates: start: 20200114, end: 20200309
  3. TEDUGLUTIDE [Suspect]
     Active Substance: TEDUGLUTIDE
     Indication: Short-bowel syndrome
     Dosage: 2.55 MILLIGRAM, QD
     Route: 065
     Dates: start: 20200114, end: 20200309
  4. TEDUGLUTIDE [Suspect]
     Active Substance: TEDUGLUTIDE
     Indication: Short-bowel syndrome
     Dosage: 2.55 MILLIGRAM, QD
     Route: 065
     Dates: start: 20200114, end: 20200309
  5. TEDUGLUTIDE [Suspect]
     Active Substance: TEDUGLUTIDE
     Dosage: 1.25 MILLIGRAM, QD
     Route: 065
     Dates: start: 20200310, end: 20200618
  6. TEDUGLUTIDE [Suspect]
     Active Substance: TEDUGLUTIDE
     Dosage: 1.25 MILLIGRAM, QD
     Route: 065
     Dates: start: 20200310, end: 20200618
  7. TEDUGLUTIDE [Suspect]
     Active Substance: TEDUGLUTIDE
     Dosage: 1.25 MILLIGRAM, QD
     Route: 065
     Dates: start: 20200310, end: 20200618
  8. TEDUGLUTIDE [Suspect]
     Active Substance: TEDUGLUTIDE
     Dosage: 1.25 MILLIGRAM, QD
     Route: 065
     Dates: start: 20200310, end: 20200618
  9. TEDUGLUTIDE [Suspect]
     Active Substance: TEDUGLUTIDE
     Dosage: 1.7 MILLIGRAM, QD
     Route: 065
     Dates: start: 20200619, end: 20201110
  10. TEDUGLUTIDE [Suspect]
     Active Substance: TEDUGLUTIDE
     Dosage: 1.7 MILLIGRAM, QD
     Route: 065
     Dates: start: 20200619, end: 20201110
  11. TEDUGLUTIDE [Suspect]
     Active Substance: TEDUGLUTIDE
     Dosage: 1.7 MILLIGRAM, QD
     Route: 065
     Dates: start: 20200619, end: 20201110
  12. TEDUGLUTIDE [Suspect]
     Active Substance: TEDUGLUTIDE
     Dosage: 1.7 MILLIGRAM, QD
     Route: 065
     Dates: start: 20200619, end: 20201110
  13. TEDUGLUTIDE [Suspect]
     Active Substance: TEDUGLUTIDE
     Dosage: 1.9 MILLIGRAM, QD
     Route: 065
     Dates: start: 2020, end: 20201110
  14. TEDUGLUTIDE [Suspect]
     Active Substance: TEDUGLUTIDE
     Dosage: 1.9 MILLIGRAM, QD
     Route: 065
     Dates: start: 2020, end: 20201110
  15. TEDUGLUTIDE [Suspect]
     Active Substance: TEDUGLUTIDE
     Dosage: 1.9 MILLIGRAM, QD
     Route: 065
     Dates: start: 2020, end: 20201110
  16. TEDUGLUTIDE [Suspect]
     Active Substance: TEDUGLUTIDE
     Dosage: 1.9 MILLIGRAM, QD
     Route: 065
     Dates: start: 2020, end: 20201110
  17. TEDUGLUTIDE [Suspect]
     Active Substance: TEDUGLUTIDE
     Dosage: 2.55 MILLIGRAM, QD
     Route: 065
     Dates: start: 20201111, end: 20210130
  18. TEDUGLUTIDE [Suspect]
     Active Substance: TEDUGLUTIDE
     Dosage: 2.55 MILLIGRAM, QD
     Route: 065
     Dates: start: 20201111, end: 20210130
  19. TEDUGLUTIDE [Suspect]
     Active Substance: TEDUGLUTIDE
     Dosage: 2.55 MILLIGRAM, QD
     Route: 065
     Dates: start: 20201111, end: 20210130
  20. TEDUGLUTIDE [Suspect]
     Active Substance: TEDUGLUTIDE
     Dosage: 2.55 MILLIGRAM, QD
     Route: 065
     Dates: start: 20201111, end: 20210130
  21. TEDUGLUTIDE [Suspect]
     Active Substance: TEDUGLUTIDE
     Dosage: 2 MILLIGRAM, QD
     Route: 065
     Dates: start: 20210201
  22. TEDUGLUTIDE [Suspect]
     Active Substance: TEDUGLUTIDE
     Dosage: 2 MILLIGRAM, QD
     Route: 065
     Dates: start: 20210201
  23. TEDUGLUTIDE [Suspect]
     Active Substance: TEDUGLUTIDE
     Dosage: 2 MILLIGRAM, QD
     Route: 065
     Dates: start: 20210201
  24. TEDUGLUTIDE [Suspect]
     Active Substance: TEDUGLUTIDE
     Dosage: 2 MILLIGRAM, QD
     Route: 065
     Dates: start: 20210201
  25. TEDUGLUTIDE [Suspect]
     Active Substance: TEDUGLUTIDE
     Dosage: 2 MILLIGRAM, QD
     Route: 065
     Dates: start: 20210201
  26. TEDUGLUTIDE [Suspect]
     Active Substance: TEDUGLUTIDE
     Dosage: 2 MILLIGRAM, QD
     Route: 065
     Dates: start: 20210201
  27. TEDUGLUTIDE [Suspect]
     Active Substance: TEDUGLUTIDE
     Dosage: 2 MILLIGRAM, QD
     Route: 065
     Dates: start: 20210201
  28. TEDUGLUTIDE [Suspect]
     Active Substance: TEDUGLUTIDE
     Dosage: 2 MILLIGRAM, QD
     Route: 065
     Dates: start: 20210201
  29. CLASTEON [Concomitant]
     Indication: Nutritional supplementation
     Dosage: 1 DOSAGE FORM
     Route: 065
     Dates: start: 202012
  30. CLASTEON [Concomitant]
     Indication: Osteoporosis
     Dosage: 200 MILLIGRAM, Q2WEEKS
     Route: 065
     Dates: start: 202012
  31. LANSOPRAZOLE [Concomitant]
     Active Substance: LANSOPRAZOLE
     Indication: Gastrointestinal disorder
     Dosage: 1 DOSAGE FORM, QD
     Route: 048
     Dates: start: 20210228
  32. LANSOPRAZOLE [Concomitant]
     Active Substance: LANSOPRAZOLE
     Indication: Gastric pH decreased
     Dosage: 15 MILLIGRAM
     Route: 048
     Dates: start: 20210228
  33. PFIZER-BIONTECH COVID-19 VACCINE [Concomitant]
     Active Substance: TOZINAMERAN
     Indication: COVID-19 immunisation
     Dosage: UNK
     Route: 065
     Dates: start: 20210424, end: 20210519
  34. PFIZER-BIONTECH COVID-19 VACCINE [Concomitant]
     Active Substance: TOZINAMERAN
     Dosage: 999 UNK
     Dates: start: 20210424, end: 20210519
  35. PROCAINE [Concomitant]
     Active Substance: PROCAINE
     Indication: Trigger finger
     Dosage: UNK UNK, SINGLE
     Route: 042
     Dates: start: 20200827, end: 20200827
  36. PROCAINE [Concomitant]
     Active Substance: PROCAINE
     Dosage: 999 UNK, X1-ONE DOSE
     Route: 042
     Dates: start: 20200827, end: 20200827
  37. URSODIOL [Concomitant]
     Active Substance: URSODIOL
     Indication: Cholelithiasis
     Dosage: 300 MILLIGRAM (2 CP), QD
     Route: 065
  38. CHOLECALCIFEROL [Concomitant]
     Active Substance: CHOLECALCIFEROL
     Indication: Osteoporosis
     Dosage: 100000 INTERNATIONAL UNIT, EVERY 2 MONTHS
     Route: 065
  39. SODIUM BICARBONATE [Concomitant]
     Active Substance: SODIUM BICARBONATE
     Indication: Metabolic disorder prophylaxis
     Dosage: 2 DOSAGE FORM, QD
     Route: 065
  40. SODIUM CHLORIDE [Concomitant]
     Active Substance: SODIUM CHLORIDE
     Indication: Electrolyte imbalance
     Dosage: 2 DOSAGE FORM, QD
     Route: 065
  41. DICODRAL [Concomitant]
     Indication: Electrolyte imbalance
     Dosage: 2 DOSAGE FORM, QD
     Route: 065

REACTIONS (6)
  - Rectal tenesmus [Recovered/Resolved]
  - Gastrointestinal submucosal tumour [Recovered/Resolved]
  - Proctalgia [Unknown]
  - Orthostatic hypotension [Recovered/Resolved]
  - Headache [Unknown]
  - Musculoskeletal stiffness [Unknown]

NARRATIVE: CASE EVENT DATE: 20210826
